FAERS Safety Report 4863636-X (Version None)
Quarter: 2005Q4

REPORT INFORMATION
  Report Type: 
  Country: None (occurrence: None)
  Receive Date: 20051222
  Receipt Date: 20050601
  Transmission Date: 20060501
  Serious: Yes (Other)
  Sender: FDA-Public Use
  Company Number: US-GLAXOSMITHKLINE-A0560781A

PATIENT

DRUGS (1)
  1. FLONASE [Suspect]
     Route: 045

REACTIONS (1)
  - CATARACT [None]
